FAERS Safety Report 10161935 (Version 1)
Quarter: 2014Q2

REPORT INFORMATION
  Report Type: Spontaneous
  Country: US (occurrence: None)
  Receive Date: 20140507
  Receipt Date: 20140507
  Transmission Date: 20141212
  Serious: No
  Sender: FDA-Public Use
  Company Number: 1713747-2014-99962

PATIENT
  Age: 65 Year
  Sex: Male
  Weight: 82.5 kg

DRUGS (3)
  1. STAY SAFE 2.5% DEX. LM/LC 2L [Suspect]
     Indication: RENAL FAILURE CHRONIC
     Dosage: DAILY, IP
     Route: 033
  2. LIBERTY CYCLER [Concomitant]
  3. LIBERTY CYCLER CASSETTE [Concomitant]

REACTIONS (3)
  - Staphylococcal infection [None]
  - Peritonitis [None]
  - Product contamination [None]
